FAERS Safety Report 7704109-6 (Version None)
Quarter: 2011Q3

REPORT INFORMATION
  Report Type: 
  Country: None (occurrence: None)
  Receive Date: 20110818
  Receipt Date: 20110801
  Transmission Date: 20111222
  Serious: Yes (Hospitalization)
  Sender: FDA-Public Use
  Company Number: 2135225-2011-00079

PATIENT
  Sex: Female

DRUGS (1)
  1. ASCLERA 1% (POLIDOCANOL) [Suspect]
     Indication: SCLEROTHERAPY
     Dosage: 3CC, I.V.
     Route: 042
     Dates: start: 20110608

REACTIONS (1)
  - DEEP VEIN THROMBOSIS [None]
